FAERS Safety Report 23441054 (Version 3)
Quarter: 2024Q1

REPORT INFORMATION
  Report Type: Spontaneous
  Country: JP (occurrence: JP)
  Receive Date: 20240125
  Receipt Date: 20240301
  Transmission Date: 20240410
  Serious: Yes (Other)
  Sender: FDA-Public Use
  Company Number: JP-SUN PHARMACEUTICAL INDUSTRIES LTD-2024R1-428067

PATIENT
  Age: 70 Year
  Sex: Male
  Weight: 52.8 kg

DRUGS (5)
  1. AMANTADINE [Suspect]
     Active Substance: AMANTADINE
     Indication: Parkinson^s disease
     Dosage: UNK
     Route: 065
  2. LEVODOPA [Concomitant]
     Active Substance: LEVODOPA
     Indication: Parkinson^s disease
     Dosage: 3000 MILLIGRAM, DAILY
     Route: 065
  3. LEVODOPA [Concomitant]
     Active Substance: LEVODOPA
     Dosage: 1750 MILLIGRAM, DAILY
     Route: 065
  4. ZONISAMIDE [Concomitant]
     Active Substance: ZONISAMIDE
     Indication: Parkinson^s disease
     Dosage: UNK
     Route: 065
  5. ENTACAPONE [Concomitant]
     Active Substance: ENTACAPONE
     Indication: Parkinson^s disease
     Dosage: UNK
     Route: 065

REACTIONS (1)
  - Hallucination [Unknown]
